FAERS Safety Report 23493971 (Version 1)
Quarter: 2024Q1

REPORT INFORMATION
  Report Type: Spontaneous
  Country: ES (occurrence: ES)
  Receive Date: 20240207
  Receipt Date: 20240207
  Transmission Date: 20240410
  Serious: Yes (Hospitalization)
  Sender: FDA-Public Use
  Company Number: None

PATIENT
  Age: 59 Year
  Sex: Female

DRUGS (2)
  1. TRILEPTAL [Interacting]
     Active Substance: OXCARBAZEPINE
     Indication: Trigeminal neuralgia
     Dosage: 600 MG, Q12H (2-0-2)
     Route: 048
     Dates: start: 20230619, end: 20231114
  2. HYDROCHLOROTHIAZIDE\LISINOPRIL [Interacting]
     Active Substance: HYDROCHLOROTHIAZIDE\LISINOPRIL
     Indication: Hypertension
     Dosage: 0.5 DOSAGE FORM, QD 1-0-0 (20 MG/12.5 MG 28 TABLETS)
     Route: 048
     Dates: start: 20220419, end: 20231114

REACTIONS (2)
  - Nausea [Recovered/Resolved]
  - Inappropriate antidiuretic hormone secretion [Recovered/Resolved]

NARRATIVE: CASE EVENT DATE: 20231107
